FAERS Safety Report 7105886-8 (Version None)
Quarter: 2010Q4

REPORT INFORMATION
  Report Type: 
  Country: None (occurrence: None)
  Receive Date: 20101116
  Receipt Date: 20101112
  Transmission Date: 20110411
  Serious: Yes (Hospitalization)
  Sender: FDA-Public Use
  Company Number: A0892246A

PATIENT
  Sex: Female

DRUGS (2)
  1. LAMICTAL [Suspect]
     Indication: AFFECTIVE DISORDER
     Dosage: 75MG TWICE PER DAY
     Route: 048
  2. FOSAMAX [Suspect]
     Dosage: 60MG WEEKLY

REACTIONS (5)
  - FRACTURE [None]
  - HYPERCALCAEMIA [None]
  - HYPERPARATHYROIDISM [None]
  - HYPERURICAEMIA [None]
  - IMPAIRED HEALING [None]
